FAERS Safety Report 9601161 (Version 2)
Quarter: 2013Q4

REPORT INFORMATION
  Report Type: Spontaneous
  Country: TW (occurrence: TW)
  Receive Date: 20131005
  Receipt Date: 20131016
  Transmission Date: 20140711
  Serious: Yes (Hospitalization)
  Sender: FDA-Public Use
  Company Number: TW-ROCHE-1282237

PATIENT
  Age: 56 Year
  Sex: Male

DRUGS (8)
  1. ACTEMRA [Suspect]
     Indication: RHEUMATOID ARTHRITIS
     Route: 042
     Dates: start: 20121026, end: 20130729
  2. PREDNISOLONE [Concomitant]
     Indication: RHEUMATOID ARTHRITIS
     Route: 048
     Dates: start: 20130729
  3. SULINDAC [Concomitant]
     Indication: RHEUMATOID ARTHRITIS
     Route: 048
     Dates: start: 20110527
  4. ZOPICLONE [Concomitant]
     Route: 048
     Dates: start: 20111205
  5. SILYMARIN [Concomitant]
     Route: 048
     Dates: start: 20130118
  6. VITAMIN B6 [Concomitant]
     Route: 048
     Dates: start: 20130408
  7. PREGABALIN [Concomitant]
     Route: 048
     Dates: start: 20130215
  8. ACETAMINOPHEN/TRAMADOL HYDROCHLORIDE [Concomitant]
     Indication: RHEUMATOID ARTHRITIS
     Route: 048
     Dates: start: 20100514

REACTIONS (5)
  - Impaired healing [Unknown]
  - Subcutaneous abscess [Recovering/Resolving]
  - Dry skin [Unknown]
  - Rash pruritic [Unknown]
  - Tuberculin test positive [Unknown]
